FAERS Safety Report 9555662 (Version 2)
Quarter: 2013Q4

REPORT INFORMATION
  Report Type: Report from Study
  Country: US (occurrence: US)
  Receive Date: 20130926
  Receipt Date: 20131014
  Transmission Date: 20140711
  Serious: Yes (Hospitalization)
  Sender: FDA-Public Use
  Company Number: PHEH2013US020090

PATIENT
  Age: 81 Year
  Sex: Female

DRUGS (1)
  1. GLEEVEC [Suspect]
     Indication: SOFT TISSUE CANCER
     Dosage: 400 MG, QD
     Route: 048
     Dates: start: 201103, end: 20130710

REACTIONS (4)
  - Vomiting [Unknown]
  - Asthenia [Unknown]
  - Gastric disorder [Unknown]
  - Diarrhoea [Unknown]
